FAERS Safety Report 18335787 (Version 1)
Quarter: 2020Q4

REPORT INFORMATION
  Report Type: Spontaneous
  Country: US (occurrence: US)
  Receive Date: 20201001
  Receipt Date: 20201001
  Transmission Date: 20210113
  Serious: Yes (Other)
  Sender: FDA-Public Use
  Company Number: US-TEVA-2020-US-1833688

PATIENT
  Sex: Female

DRUGS (23)
  1. ACETAMINOPHEN W/OXYCODONE [Suspect]
     Active Substance: ACETAMINOPHEN\OXYCODONE HYDROCHLORIDE
     Route: 065
  2. OXYCONTIN [Suspect]
     Active Substance: OXYCODONE HYDROCHLORIDE
     Route: 065
  3. MORPHINE IV [Suspect]
     Active Substance: MORPHINE
     Route: 042
  4. AMBIEN [Suspect]
     Active Substance: ZOLPIDEM TARTRATE
     Route: 065
  5. OXYCODONE HYDROCHLORIDE. [Suspect]
     Active Substance: OXYCODONE HYDROCHLORIDE
     Dosage: FORM OF ADMIN: IMMEDIATE RELEASE TABLET
     Route: 065
  6. NEURONTIN [Suspect]
     Active Substance: GABAPENTIN
     Route: 065
  7. HYDROCODONE [Suspect]
     Active Substance: HYDROCODONE
     Route: 065
  8. ZOLOFT [Suspect]
     Active Substance: SERTRALINE HYDROCHLORIDE
     Route: 065
  9. TRAMADOL. [Suspect]
     Active Substance: TRAMADOL
     Dosage: FORM OF ADMIN: EXTENDED RELEASE TABLET
     Route: 065
  10. HYDROCODONE AND ACETAMINOPHEN [Suspect]
     Active Substance: ACETAMINOPHEN\HYDROCODONE
     Route: 065
  11. LORTAB [Suspect]
     Active Substance: ACETAMINOPHEN\HYDROCODONE BITARTRATE
     Route: 065
  12. CYMBALTA [Suspect]
     Active Substance: DULOXETINE HYDROCHLORIDE
     Route: 065
  13. TRAZODONE [Suspect]
     Active Substance: TRAZODONE HYDROCHLORIDE
     Route: 065
  14. OXYCODONE [Suspect]
     Active Substance: OXYCODONE
     Dosage: FORM OF ADMIN: EXTENDED RELEASE TABLET
     Route: 065
  15. PERCOCET [Suspect]
     Active Substance: ACETAMINOPHEN\OXYCODONE HYDROCHLORIDE
     Route: 065
  16. NORCO [Suspect]
     Active Substance: ACETAMINOPHEN\HYDROCODONE BITARTRATE
     Route: 065
  17. VALIUM [Suspect]
     Active Substance: DIAZEPAM
     Route: 065
  18. METHADONE [Suspect]
     Active Substance: METHADONE HYDROCHLORIDE
     Route: 065
  19. DARVOCET [Suspect]
     Active Substance: ACETAMINOPHEN\PROPOXYPHENE HYDROCHLORIDE
     Route: 065
  20. SUBOXONE [Suspect]
     Active Substance: BUPRENORPHINE HYDROCHLORIDE\NALOXONE HYDROCHLORIDE
     Route: 065
  21. DILAUDID [Suspect]
     Active Substance: HYDROMORPHONE HYDROCHLORIDE
     Route: 042
  22. MORPHINE [Suspect]
     Active Substance: MORPHINE
     Dosage: FORM OF ADMIN: EXTENDED RELEASE TABLET
     Route: 065
  23. DILAUDID [Suspect]
     Active Substance: HYDROMORPHONE HYDROCHLORIDE
     Route: 065

REACTIONS (20)
  - Drug dependence [Unknown]
  - Oesophageal disorder [Unknown]
  - Localised infection [Unknown]
  - Anger [Unknown]
  - Insomnia [Unknown]
  - Osteoarthritis [Unknown]
  - Fibromyalgia [Unknown]
  - Spinal fusion surgery [Unknown]
  - Seizure [Unknown]
  - Fatigue [Unknown]
  - Economic problem [Unknown]
  - Suicidal ideation [Unknown]
  - Cubital tunnel syndrome [Unknown]
  - Overdose [Unknown]
  - Anxiety [Unknown]
  - Substance use disorder [Unknown]
  - Carpal tunnel syndrome [Unknown]
  - Pain [Unknown]
  - Hypermobility syndrome [Unknown]
  - Herpes zoster [Unknown]
